FAERS Safety Report 8536098-9 (Version None)
Quarter: 2012Q3

REPORT INFORMATION
  Report Type: 
  Country: None (occurrence: None)
  Receive Date: 20120725
  Receipt Date: 20120718
  Transmission Date: 20120928
  Serious: Yes (Hospitalization)
  Sender: FDA-Public Use
  Company Number: US-GE HEALTHCARE MEDICAL DIAGNOSTICS-OMPQ-PR-1207S-0783

PATIENT

DRUGS (2)
  1. OMNIPAQUE 140 [Suspect]
     Indication: DIAGNOSTIC PROCEDURE
  2. OMNIPAQUE 140 [Suspect]
     Indication: PRODUCT USED FOR UNKNOWN INDICATION
     Route: 042
     Dates: start: 20120302, end: 20120302

REACTIONS (1)
  - BLOOD CREATININE INCREASED [None]
